FAERS Safety Report 5668478-3 (Version None)
Quarter: 2008Q1

REPORT INFORMATION
  Report Type: 
  Country: None (occurrence: None)
  Receive Date: 20080315
  Receipt Date: 20080222
  Transmission Date: 20080703
  Serious: No
  Sender: FDA-Public Use
  Company Number: US-ABBOTT-08P-163-0439873-00

PATIENT
  Sex: Male

DRUGS (3)
  1. HUMIRA [Suspect]
     Indication: CROHN'S DISEASE
     Route: 058
     Dates: start: 20080122, end: 20080205
  2. HUMIRA [Suspect]
     Route: 058
     Dates: start: 20080205, end: 20080219
  3. HUMIRA [Suspect]
     Route: 058
     Dates: start: 20080219

REACTIONS (1)
  - PAIN IN JAW [None]
